FAERS Safety Report 19637886 (Version 2)
Quarter: 2021Q3

REPORT INFORMATION
  Report Type: Other
  Country: AU (occurrence: AU)
  Receive Date: 20210730
  Receipt Date: 20210805
  Transmission Date: 20211014
  Serious: Yes (Hospitalization)
  Sender: FDA-Public Use
  Company Number: AU-NOVA LABORATORIES LIMITED-2114444

PATIENT
  Age: 21 Day
  Sex: Male

DRUGS (1)
  1. PURIXAN [Suspect]
     Active Substance: MERCAPTOPURINE
     Indication: PRODUCT USED FOR UNKNOWN INDICATION
     Route: 064

REACTIONS (3)
  - Breast feeding [Unknown]
  - Varicella zoster virus infection [Recovering/Resolving]
  - Foetal exposure during pregnancy [None]
